FAERS Safety Report 10405402 (Version 1)
Quarter: 2014Q3

REPORT INFORMATION
  Report Type: Report from Study
  Country: US (occurrence: US)
  Receive Date: 20140825
  Receipt Date: 20140825
  Transmission Date: 20150326
  Serious: Yes (Other)
  Sender: FDA-Public Use
  Company Number: US-ROCHE-1453382

PATIENT
  Age: 54 Year
  Sex: Female

DRUGS (3)
  1. CARBOPLATIN. [Suspect]
     Active Substance: CARBOPLATIN
     Indication: BREAST CANCER
     Route: 065
  2. PACLITAXEL. [Suspect]
     Active Substance: PACLITAXEL
     Indication: BREAST CANCER
     Route: 065
  3. BEVACIZUMAB [Suspect]
     Active Substance: BEVACIZUMAB
     Indication: BREAST CANCER
     Route: 065

REACTIONS (9)
  - Thrombotic microangiopathy [Unknown]
  - Hypertension [Recovered/Resolved]
  - Renal failure acute [Unknown]
  - Renal injury [Unknown]
  - Thrombocytopenia [Unknown]
  - Renal ischaemia [Unknown]
  - Renal tubular disorder [Unknown]
  - Haemolytic anaemia [Unknown]
  - Haemoglobinuria [Unknown]
